FAERS Safety Report 9886661 (Version 1)
Quarter: 2014Q1

REPORT INFORMATION
  Report Type: Report from Study
  Country: US (occurrence: US)
  Receive Date: 20140210
  Receipt Date: 20140210
  Transmission Date: 20141002
  Serious: Yes (Hospitalization)
  Sender: FDA-Public Use
  Company Number: US-ABBVIE-14P-163-1196594-00

PATIENT
  Age: 25 Year
  Sex: Female
  Weight: 62.65 kg

DRUGS (5)
  1. HUMIRA [Suspect]
     Indication: CROHN^S DISEASE
     Route: 058
     Dates: start: 20130410, end: 201309
  2. HUMIRA [Suspect]
     Route: 058
     Dates: start: 201310, end: 201312
  3. HUMIRA [Suspect]
     Dates: start: 201312
  4. IMURAN [Concomitant]
     Indication: CROHN^S DISEASE
  5. PREDNISONE [Concomitant]
     Indication: CROHN^S DISEASE

REACTIONS (5)
  - Intestinal obstruction [Recovered/Resolved]
  - Diarrhoea [Unknown]
  - Unevaluable event [Unknown]
  - Diarrhoea [Unknown]
  - Upper respiratory tract infection [Recovered/Resolved]
